FAERS Safety Report 5311897-5 (Version None)
Quarter: 2007Q2

REPORT INFORMATION
  Report Type: 
  Country: None (occurrence: None)
  Receive Date: 20070426
  Receipt Date: 20070426
  Transmission Date: 20071010
  Serious: Yes (Hospitalization)
  Sender: FDA-Public Use
  Company Number: None

PATIENT
  Sex: Male
  Weight: 60.3284 kg

DRUGS (1)
  1. CETUXIMAB AWAITING PHARMACY RECORDS AWAITING PHARMACY RECORDS [Suspect]
     Indication: MULTIPLE MYELOMA
     Dosage: 448 MG WEEKLY IV DRIP
     Route: 041
     Dates: start: 20070313, end: 20070417

REACTIONS (6)
  - ENDOCARDITIS [None]
  - HYPOTENSION [None]
  - MENTAL STATUS CHANGES [None]
  - PYREXIA [None]
  - RESPIRATORY FAILURE [None]
  - TACHYCARDIA [None]
